FAERS Safety Report 17003977 (Version 3)
Quarter: 2019Q4

REPORT INFORMATION
  Report Type: Spontaneous
  Country: US (occurrence: US)
  Receive Date: 20191107
  Receipt Date: 20191128
  Transmission Date: 20200122
  Serious: No
  Sender: FDA-Public Use
  Company Number: US-BEH-2019108980

PATIENT
  Sex: Female
  Weight: 55.33 kg

DRUGS (1)
  1. HIZENTRA [Suspect]
     Active Substance: HUMAN IMMUNOGLOBULIN G
     Indication: HYPOGAMMAGLOBULINAEMIA
     Dosage: 0.2 GRAM PER MILLILITRE, QW
     Route: 058
     Dates: start: 201910

REACTIONS (1)
  - Pruritus [Unknown]
